FAERS Safety Report 23952677 (Version 1)
Quarter: 2024Q2

REPORT INFORMATION
  Report Type: Spontaneous
  Country: US (occurrence: US)
  Receive Date: 20240607
  Receipt Date: 20240607
  Transmission Date: 20240715
  Serious: Yes (Other)
  Sender: FDA-Public Use
  Company Number: US-ABBVIE-5790425

PATIENT
  Sex: Female

DRUGS (1)
  1. REFRESH TEARS [Suspect]
     Active Substance: CARBOXYMETHYLCELLULOSE SODIUM
     Indication: Product used for unknown indication
     Route: 047

REACTIONS (6)
  - Surgery [Unknown]
  - Corneal abrasion [Recovered/Resolved]
  - Foreign body sensation in eyes [Unknown]
  - Corneal abrasion [Recovered/Resolved]
  - Therapeutic product effect incomplete [Unknown]
  - Dry eye [Unknown]

NARRATIVE: CASE EVENT DATE: 19770101
